FAERS Safety Report 21643055 (Version 1)
Quarter: 2022Q4

REPORT INFORMATION
  Report Type: Spontaneous
  Country: US (occurrence: US)
  Receive Date: 20221125
  Receipt Date: 20221125
  Transmission Date: 20230113
  Serious: No
  Sender: FDA-Public Use
  Company Number: US-SA-SAC20221122000852

PATIENT

DRUGS (5)
  1. DUPIXENT [Suspect]
     Active Substance: DUPILUMAB
     Indication: Dermatitis atopic
     Dosage: UNK
     Route: 065
     Dates: start: 202202
  2. METFORMIN [Concomitant]
     Active Substance: METFORMIN HYDROCHLORIDE
     Indication: Glucose tolerance impaired
     Dosage: 500 MG, BID
     Dates: start: 2017
  3. METFORMIN [Concomitant]
     Active Substance: METFORMIN HYDROCHLORIDE
     Dosage: 1000 MG, BID
     Dates: start: 2021
  4. CLOBETASOL [Concomitant]
     Active Substance: CLOBETASOL
     Dosage: BID PM
     Route: 061
  5. EUCRISA [Concomitant]
     Active Substance: CRISABOROLE
     Dosage: BID
     Route: 061

REACTIONS (3)
  - Fatigue [Recovered/Resolved]
  - Somnolence [Recovered/Resolved]
  - Glycosylated haemoglobin increased [Unknown]

NARRATIVE: CASE EVENT DATE: 20220101
